FAERS Safety Report 7765522-4 (Version None)
Quarter: 2011Q3

REPORT INFORMATION
  Report Type: 
  Country: None (occurrence: None)
  Receive Date: 20110921
  Receipt Date: 20110912
  Transmission Date: 20111222
  Serious: Yes (Hospitalization)
  Sender: FDA-Public Use
  Company Number: DE-ASTRAZENECA-2011SE51505

PATIENT
  Age: 28215 Day
  Sex: Female
  Weight: 73 kg

DRUGS (15)
  1. HYDROCHLOROTHIAZIDE [Concomitant]
     Indication: HYPERTENSION
     Route: 048
     Dates: start: 20110224
  2. LERCANIDIPINE [Concomitant]
     Indication: HYPERTENSION
     Route: 048
  3. BISOPROLOL FUMARATE [Concomitant]
     Indication: HYPERTENSION
     Route: 048
  4. FUROSEMIDE [Concomitant]
     Indication: HYPERTENSION
     Route: 048
     Dates: start: 20100820
  5. OLMESARTAN MEDOXOMIL [Concomitant]
     Indication: HYPERTENSION
     Route: 048
  6. LEVOTHYROXINE SODIUM [Concomitant]
     Indication: HYPOTHYROIDISM
     Route: 048
  7. GEFITINIB [Suspect]
     Indication: NON-SMALL CELL LUNG CANCER
     Route: 048
     Dates: start: 20100821
  8. SPIRONOLACTONE [Concomitant]
     Indication: HYPERTENSION
     Route: 048
     Dates: start: 20100820
  9. ASA PROTECT [Concomitant]
     Indication: HEART RATE ABNORMAL
     Route: 048
     Dates: start: 20110204
  10. IBUPROFEN [Concomitant]
     Indication: PAIN
     Route: 048
     Dates: start: 20100820
  11. PANTOPRAZOLE [Concomitant]
     Indication: GASTRIC DISORDER
     Route: 048
  12. LYRICA [Concomitant]
     Indication: NEURALGIA
     Route: 048
     Dates: start: 20101019
  13. DIGIMERCK [Concomitant]
     Indication: CARDIAC FAILURE
     Route: 048
     Dates: start: 20110206
  14. FUCIDERM [Concomitant]
     Indication: ECZEMA
     Dosage: AS REQUIRED
     Route: 061
     Dates: start: 20110314
  15. ICHTODERM [Concomitant]
     Indication: ECZEMA
     Dosage: AS REQUIRED
     Route: 061
     Dates: start: 20110727

REACTIONS (1)
  - UTERINE HAEMORRHAGE [None]
